FAERS Safety Report 17259021 (Version 1)
Quarter: 2020Q1

REPORT INFORMATION
  Report Type: Spontaneous
  Country: JP (occurrence: JP)
  Receive Date: 20200110
  Receipt Date: 20200110
  Transmission Date: 20200409
  Serious: Yes (Life-Threatening, Hospitalization, Other)
  Sender: FDA-Public Use
  Company Number: JP-BAYER-2019-181756

PATIENT
  Age: 70 Year
  Sex: Male
  Weight: 54 kg

DRUGS (10)
  1. XOFIGO [Suspect]
     Active Substance: RADIUM RA-223 DICHLORIDE
     Indication: HORMONE-REFRACTORY PROSTATE CANCER
     Dosage: UNK55KBQ/KG, Q1MON
     Route: 042
     Dates: start: 20190620, end: 20190620
  2. RANMARK [Concomitant]
     Active Substance: DENOSUMAB
  3. XTANDI [Concomitant]
     Active Substance: ENZALUTAMIDE
     Dosage: DAILY DOSE 160 MG
     Route: 048
     Dates: start: 20190806, end: 20191125
  4. XOFIGO [Suspect]
     Active Substance: RADIUM RA-223 DICHLORIDE
     Indication: HORMONE-REFRACTORY PROSTATE CANCER
     Dosage: 55KBQ/KG, Q1MON
     Route: 042
     Dates: start: 20190822, end: 20190822
  5. XOFIGO [Suspect]
     Active Substance: RADIUM RA-223 DICHLORIDE
     Indication: HORMONE-REFRACTORY PROSTATE CANCER
     Dosage: 55KBQ/KG, Q1MON
     Route: 042
     Dates: start: 20190425, end: 20190425
  6. XOFIGO [Suspect]
     Active Substance: RADIUM RA-223 DICHLORIDE
     Indication: HORMONE-REFRACTORY PROSTATE CANCER
     Dosage: 55KBQ/KG, Q1MON
     Route: 042
     Dates: start: 20190718, end: 20190718
  7. LEUPLIN [Concomitant]
     Active Substance: LEUPROLIDE ACETATE
     Dosage: DAILY DOSE 11.25 MG
  8. XOFIGO [Suspect]
     Active Substance: RADIUM RA-223 DICHLORIDE
     Indication: METASTASES TO BONE
     Dosage: 55KBQ/KG, Q1MON
     Route: 042
     Dates: start: 20190523, end: 20190523
  9. ZOLEDRONIC ACID [Concomitant]
     Active Substance: ZOLEDRONIC ACID
     Dosage: DAILY DOSE 4 MG
  10. DOCETAXEL. [Suspect]
     Active Substance: DOCETAXEL
     Dosage: UNK
     Dates: end: 20180606

REACTIONS (3)
  - Anaemia [Unknown]
  - Plasma cell myeloma [None]
  - Pancytopenia [Not Recovered/Not Resolved]

NARRATIVE: CASE EVENT DATE: 20190901
